FAERS Safety Report 5987741-X (Version None)
Quarter: 2008Q4

REPORT INFORMATION
  Report Type: 
  Country: None (occurrence: None)
  Receive Date: 20081209
  Receipt Date: 20081125
  Transmission Date: 20090506
  Serious: Yes (Other)
  Sender: FDA-Public Use
  Company Number: ZA-GENENTECH-268598

PATIENT
  Sex: Female

DRUGS (7)
  1. MABTHERA [Suspect]
     Indication: CHRONIC LYMPHOCYTIC LEUKAEMIA
     Dosage: 560 MG/M2, UNK
     Route: 042
     Dates: start: 20070213
  2. CHEMOTHERAPY (UNK INGREDIENTS) [Concomitant]
     Indication: CHRONIC LYMPHOCYTIC LEUKAEMIA
  3. FLUDARA [Concomitant]
     Indication: CHRONIC LYMPHOCYTIC LEUKAEMIA
     Dosage: UNK
     Dates: start: 20070213, end: 20070719
  4. DOLASETRON [Concomitant]
     Indication: DRUG USE FOR UNKNOWN INDICATION
     Dosage: UNK
     Dates: start: 20070213, end: 20070719
  5. MEPYRAMINE [Concomitant]
     Indication: DRUG USE FOR UNKNOWN INDICATION
     Dosage: UNK
     Dates: start: 20070213, end: 20070719
  6. PANADO [Concomitant]
     Indication: DRUG USE FOR UNKNOWN INDICATION
     Dosage: UNK
     Dates: start: 20070213, end: 20070719
  7. MEPERIDINE HCL [Concomitant]
     Indication: DRUG USE FOR UNKNOWN INDICATION
     Dosage: UNK
     Dates: start: 20070213, end: 20070719

REACTIONS (6)
  - ASTHENIA [None]
  - CREUTZFELDT-JAKOB DISEASE [None]
  - PNEUMOCYSTIS JIROVECI PNEUMONIA [None]
  - PROGRESSIVE MULTIFOCAL LEUKOENCEPHALOPATHY [None]
  - PYREXIA [None]
  - SALMONELLOSIS [None]
